FAERS Safety Report 4446083-4 (Version None)
Quarter: 2004Q3

REPORT INFORMATION
  Report Type: 
  Country: None (occurrence: None)
  Receive Date: 20040910
  Receipt Date: 20040831
  Transmission Date: 20050211
  Serious: Yes (Hospitalization)
  Sender: FDA-Public Use
  Company Number: DE-AMGEN-UK089125

PATIENT
  Age: 44 Year
  Sex: Male

DRUGS (8)
  1. NEULASTA [Suspect]
     Indication: CHEMOTHERAPY
     Route: 058
     Dates: start: 20040604
  2. BLEOMYCIN [Concomitant]
     Dates: start: 20040527, end: 20040603
  3. ETOPOSIDE [Concomitant]
     Dates: start: 20040527, end: 20040603
  4. DOXORUBICIN HCL [Concomitant]
     Dates: start: 20040527, end: 20040603
  5. CYCLOPHOSPHAMIDE [Concomitant]
     Dates: start: 20040527, end: 20040603
  6. VINCRISTINE [Concomitant]
     Dates: start: 20040527, end: 20040603
  7. PROCARBAZINE [Concomitant]
     Dates: start: 20040527, end: 20040603
  8. PREDNISONE [Concomitant]
     Dates: start: 20040527, end: 20040603

REACTIONS (2)
  - BACK PAIN [None]
  - LEUKOCYTOSIS [None]
